FAERS Safety Report 8095347-4 (Version None)
Quarter: 2012Q1

REPORT INFORMATION
  Report Type: 
  Country: None (occurrence: None)
  Receive Date: 20120125
  Receipt Date: 20120120
  Transmission Date: 20120608
  Serious: Yes (Hospitalization, Disabling)
  Sender: FDA-Public Use
  Company Number: 2011SP033361

PATIENT
  Age: 24 Year
  Sex: Female
  Weight: 130.1823 kg

DRUGS (5)
  1. NITROFURANTOIN [Suspect]
     Indication: URINARY TRACT INFECTION
     Dates: start: 20090701, end: 20090701
  2. ALBUTEROL [Concomitant]
  3. MEDROL [Suspect]
     Indication: URINARY TRACT INFECTION
     Dates: start: 20090701
  4. PHENAZOPYRIDINE HCL TAB [Suspect]
     Indication: PRODUCT USED FOR UNKNOWN INDICATION
  5. NUVARING [Suspect]
     Indication: CONTRACEPTION
     Dates: start: 20080919, end: 20090723

REACTIONS (26)
  - GESTATIONAL DIABETES [None]
  - ABORTION SPONTANEOUS [None]
  - LACTOBACILLUS INFECTION [None]
  - STREPTOCOCCAL INFECTION [None]
  - WEIGHT INCREASED [None]
  - AMENORRHOEA [None]
  - MATERNAL EXPOSURE DURING PREGNANCY [None]
  - ARTHRALGIA [None]
  - URINARY TRACT INFECTION [None]
  - PREGNANCY WITH CONTRACEPTIVE DEVICE [None]
  - BACTERIAL TOXAEMIA [None]
  - PRE-ECLAMPSIA [None]
  - HAEMOGLOBIN DECREASED [None]
  - NERVE COMPRESSION [None]
  - LYMPHADENOPATHY [None]
  - DEEP VEIN THROMBOSIS [None]
  - HYPOKALAEMIA [None]
  - ASTHMA [None]
  - HYPERTENSION [None]
  - MAMMOPLASTY [None]
  - DRUG ERUPTION [None]
  - LEUKOCYTOSIS [None]
  - PULMONARY EMBOLISM [None]
  - INJURY [None]
  - CONDITION AGGRAVATED [None]
  - SINUS TACHYCARDIA [None]
